FAERS Safety Report 7076772-7 (Version None)
Quarter: 2010Q4

REPORT INFORMATION
  Report Type: 
  Country: None (occurrence: None)
  Receive Date: 20101101
  Receipt Date: 20101021
  Transmission Date: 20110411
  Serious: Yes (Other)
  Sender: FDA-Public Use
  Company Number: US-JNJFOC-20100907987

PATIENT
  Sex: Female

DRUGS (10)
  1. REMICADE [Suspect]
     Indication: RHEUMATOID ARTHRITIS
     Route: 042
  2. REMICADE [Suspect]
     Route: 042
  3. ASPIRIN [Concomitant]
     Route: 065
  4. ATORVASTATIN [Concomitant]
     Indication: BLOOD CHOLESTEROL
     Route: 065
  5. MTX [Concomitant]
     Indication: RHEUMATOID ARTHRITIS
     Route: 065
  6. DILTIAZEM [Concomitant]
     Indication: HYPERTENSION
     Route: 065
  7. FOLIC ACID [Concomitant]
     Indication: VITAMIN SUPPLEMENTATION
     Route: 065
  8. CALCIUM WITH VITAMIN D [Concomitant]
     Indication: VITAMIN SUPPLEMENTATION
     Route: 065
  9. LORATADINE [Concomitant]
     Indication: HYPERSENSITIVITY
     Route: 065
  10. DICLOFENAC SODIUM [Concomitant]
     Indication: RHEUMATOID ARTHRITIS
     Route: 065

REACTIONS (3)
  - NEPHROLITHIASIS [None]
  - PAIN IN EXTREMITY [None]
  - URINARY TRACT INFECTION [None]
